FAERS Safety Report 21520014 (Version 1)
Quarter: 2022Q4

REPORT INFORMATION
  Report Type: Spontaneous
  Country: US (occurrence: US)
  Receive Date: 20221028
  Receipt Date: 20221028
  Transmission Date: 20230112
  Serious: Yes (Hospitalization)
  Sender: FDA-Public Use
  Company Number: US-ARBOR PHARMACEUTICALS, LLC-US-2022ARB002732

PATIENT
  Age: 61 Year
  Sex: Female
  Weight: 45.5 kg

DRUGS (2)
  1. IVERMECTIN [Suspect]
     Active Substance: IVERMECTIN
     Indication: COVID-19 prophylaxis
     Dosage: UNK
  2. SODIUM BICARBONATE [Suspect]
     Active Substance: SODIUM BICARBONATE
     Indication: Gastrooesophageal reflux disease
     Dosage: MIXED IN WATER, MULTIPLE TIMES DAILY, OVER 8 MONTHS TIME PERIOD
     Route: 048

REACTIONS (5)
  - Gastric perforation [Unknown]
  - Electrolyte imbalance [Unknown]
  - Gastric pneumatosis [Unknown]
  - Intentional product use issue [Unknown]
  - Off label use [Unknown]
